FAERS Safety Report 14012847 (Version 1)
Quarter: 2017Q3

REPORT INFORMATION
  Report Type: Report from Study
  Country: ES (occurrence: ES)
  Receive Date: 20170926
  Receipt Date: 20170926
  Transmission Date: 20171128
  Serious: Yes (Hospitalization)
  Sender: FDA-Public Use
  Company Number: ES-BAYER-2017-177879

PATIENT
  Age: 84 Year
  Sex: Male

DRUGS (8)
  1. CITALOPRAM [Interacting]
     Active Substance: CITALOPRAM HYDROBROMIDE
     Indication: DEPRESSION
     Dosage: 20 MG, QD
     Route: 048
     Dates: start: 20140101
  2. SIMVASTATIN. [Concomitant]
     Active Substance: SIMVASTATIN
     Indication: DYSLIPIDAEMIA
     Dosage: 1 DF, HS
     Route: 048
     Dates: start: 20130101
  3. ADIRO 100 MG GASTRO-RESISTANT TABLETS EFG, 60 TABLETS [Suspect]
     Active Substance: ASPIRIN
     Indication: MYOCARDIAL ISCHAEMIA
     Dosage: 100 MG, QD
     Route: 048
     Dates: start: 20130101, end: 20170315
  4. HIGROTONA [Concomitant]
     Active Substance: CHLORTHALIDONE
     Indication: HYPERTENSION
     Dosage: 25 MG, QD
     Route: 048
     Dates: start: 20130101
  5. METFORMIN [Concomitant]
     Active Substance: METFORMIN HYDROCHLORIDE
     Indication: TYPE 2 DIABETES MELLITUS
     Dosage: 0.5 DF, QD
     Route: 048
     Dates: start: 20130101
  6. CANDESARTAN. [Concomitant]
     Active Substance: CANDESARTAN
     Indication: DYSLIPIDAEMIA
     Dosage: 10 MG, QD
     Route: 048
     Dates: start: 20130101
  7. CANDESARTAN. [Concomitant]
     Active Substance: CANDESARTAN
     Indication: HYPERTENSION
     Dosage: UNK
     Route: 048
     Dates: start: 20130101
  8. CANDESARTAN. [Concomitant]
     Active Substance: CANDESARTAN
     Indication: TYPE 2 DIABETES MELLITUS
     Dosage: 425 MG, QD
     Route: 048
     Dates: start: 20130101

REACTIONS (3)
  - Anaemia [Recovered/Resolved]
  - Syncope [Recovered/Resolved]
  - Upper gastrointestinal haemorrhage [Recovered/Resolved]

NARRATIVE: CASE EVENT DATE: 20170313
